FAERS Safety Report 6288847-0 (Version None)
Quarter: 2009Q3

REPORT INFORMATION
  Report Type: 
  Country: None (occurrence: None)
  Receive Date: 20090729
  Receipt Date: 20090726
  Transmission Date: 20100115
  Serious: Yes (Hospitalization)
  Sender: FDA-Public Use
  Company Number: US-PFIZER INC-2009219739

PATIENT
  Sex: Male

DRUGS (1)
  1. FLAGYL [Suspect]

REACTIONS (1)
  - ADVERSE DRUG REACTION [None]
